FAERS Safety Report 19262305 (Version 1)
Quarter: 2021Q2

REPORT INFORMATION
  Report Type: Spontaneous
  Country: US (occurrence: US)
  Receive Date: 20210516
  Receipt Date: 20210516
  Transmission Date: 20210717
  Serious: Yes (Other)
  Sender: FDA-Public Use
  Company Number: US-DRREDDYS-USA/USA/21/0135513

PATIENT
  Age: 4 Month
  Sex: Male

DRUGS (8)
  1. MELPHALAN HYDROCHLORIDE FOR INJECTION [Suspect]
     Active Substance: MELPHALAN HYDROCHLORIDE
     Indication: RETINOBLASTOMA
     Dosage: 3 CYCLES IN THE RIGHT EYE AND 4 CYCLES IN THE LEFT EYE
     Route: 013
  2. MELPHALAN HYDROCHLORIDE FOR INJECTION [Suspect]
     Active Substance: MELPHALAN HYDROCHLORIDE
     Dosage: SECOND DOSE OF INTRAVITREAL MELPHALAN 20 UG INJECTION
  3. CARBOPLATIN. [Suspect]
     Active Substance: CARBOPLATIN
     Dosage: RECEIVED 3 CYCLES IN THE RIGHT EYE AND 4 CYCLES IN THE LEFT EYE
     Route: 013
  4. TOPOTECAN HYDROCHLORIDE FOR INJECTION [Suspect]
     Active Substance: TOPOTECAN HYDROCHLORIDE
     Indication: RETINOBLASTOMA
     Dosage: RECEIVED 3 CYCLES IN THE RIGHT EYE AND 4 CYCLES IN THE LEFT EYE
     Route: 013
  5. CARBOPLATIN. [Suspect]
     Active Substance: CARBOPLATIN
     Indication: RETINOBLASTOMA
  6. VINCRISTINE [Suspect]
     Active Substance: VINCRISTINE
     Indication: RETINOBLASTOMA
  7. MELPHALAN HYDROCHLORIDE FOR INJECTION [Suspect]
     Active Substance: MELPHALAN HYDROCHLORIDE
  8. ETOPOSIDE. [Suspect]
     Active Substance: ETOPOSIDE
     Indication: RETINOBLASTOMA

REACTIONS (2)
  - Macular fibrosis [Unknown]
  - Retinopathy proliferative [Unknown]
